FAERS Safety Report 5870247-6 (Version None)
Quarter: 2008Q3

REPORT INFORMATION
  Report Type: 
  Country: None (occurrence: None)
  Receive Date: 20080904
  Receipt Date: 20070823
  Transmission Date: 20090109
  Serious: No
  Sender: FDA-Public Use
  Company Number: US-BRISTOL-MYERS SQUIBB COMPANY-13851035

PATIENT
  Age: 62 Year
  Sex: Female

DRUGS (12)
  1. DEFINITY [Suspect]
     Indication: ECHOCARDIOGRAM
     Route: 042
     Dates: start: 20070718, end: 20070718
  2. NORVASC [Concomitant]
  3. CALCIUM CITRATE [Concomitant]
  4. VITAMIN B1 TAB [Concomitant]
  5. TRICOR [Concomitant]
  6. ACTONEL [Concomitant]
  7. LIPITOR [Concomitant]
  8. NASONEX [Concomitant]
  9. CLARITIN [Concomitant]
  10. ASPIRIN [Concomitant]
  11. DOXAZOSIN MESYLATE [Concomitant]
  12. VITAMIN B-12 [Concomitant]
     Route: 060

REACTIONS (2)
  - BACK PAIN [None]
  - MUSCLE SPASMS [None]
